FAERS Safety Report 10458431 (Version 1)
Quarter: 2014Q3

REPORT INFORMATION
  Report Type: Spontaneous
  Country: US (occurrence: None)
  Receive Date: 20140916
  Receipt Date: 20140916
  Transmission Date: 20150326
  Serious: Yes (Death)
  Sender: FDA-Public Use
  Company Number: None

PATIENT
  Age: 58 Year
  Sex: Female

DRUGS (23)
  1. LORAZEPAM. [Concomitant]
     Active Substance: LORAZEPAM
  2. MORPHINE [Concomitant]
     Active Substance: MORPHINE
  3. MONTELUKAST [Concomitant]
     Active Substance: MONTELUKAST SODIUM
  4. ONDANSETRON [Concomitant]
     Active Substance: ONDANSETRON
  5. ACYCLOVIR. [Concomitant]
     Active Substance: ACYCLOVIR
  6. ACETAMINOPHEN. [Concomitant]
     Active Substance: ACETAMINOPHEN
  7. OMEPRAZOLE. [Concomitant]
     Active Substance: OMEPRAZOLE
  8. ADVAIR HFA [Concomitant]
     Active Substance: FLUTICASONE PROPIONATE\SALMETEROL XINAFOATE
  9. LACTULOSE. [Concomitant]
     Active Substance: LACTULOSE
  10. DOCUSATE [Concomitant]
     Active Substance: DOCUSATE
  11. SENNOSIDES [Concomitant]
     Active Substance: SENNOSIDES
  12. ATROPINE OPHT DROP [Concomitant]
  13. DEXAMETHASONE. [Concomitant]
     Active Substance: DEXAMETHASONE
  14. ALBUTEROL. [Concomitant]
     Active Substance: ALBUTEROL
  15. MIRALAX [Concomitant]
     Active Substance: POLYETHYLENE GLYCOL 3350
  16. POMALYST [Suspect]
     Active Substance: POMALIDOMIDE
     Indication: PLASMA CELL MYELOMA
     Dosage: 3MG?DAILY X21D/28D?ORALLY
     Route: 048
     Dates: start: 20140811, end: 20140908
  17. POMALYST [Suspect]
     Active Substance: POMALIDOMIDE
     Dosage: 4MG?DAILY X21D/28D?ORALLY
     Route: 048
     Dates: start: 20140519, end: 20140810
  18. OXYCONTIN [Concomitant]
     Active Substance: OXYCODONE HYDROCHLORIDE
  19. NYSTATIN. [Concomitant]
     Active Substance: NYSTATIN
  20. FENTANYL TRANSDERMAL SYSTEM [Concomitant]
     Active Substance: FENTANYL
  21. BISACODYL. [Concomitant]
     Active Substance: BISACODYL
  22. HALOPERIDOL. [Concomitant]
     Active Substance: HALOPERIDOL
  23. PHENOBARBITAL. [Concomitant]
     Active Substance: PHENOBARBITAL

REACTIONS (1)
  - Death [None]

NARRATIVE: CASE EVENT DATE: 20140908
